FAERS Safety Report 9959925 (Version 1)
Quarter: 2014Q1

REPORT INFORMATION
  Report Type: Spontaneous
  Country: JP (occurrence: None)
  Receive Date: 20140227
  Receipt Date: 20140227
  Transmission Date: 20141002
  Serious: Yes (Other)
  Sender: FDA-Public Use
  Company Number: SYM-2014-17833

PATIENT
  Age: 61 Year
  Sex: Male

DRUGS (2)
  1. TIMOLOL [Suspect]
     Indication: PRODUCT USED FOR UNKNOWN INDICATION
     Dosage: 4 GTT, DAY, OPHTHALMIC
     Route: 047
     Dates: start: 20100402
  2. TAPROS [Suspect]
     Indication: OPEN ANGLE GLAUCOMA
     Dosage: 1 GTT, DAY, OPHTALMIC
     Route: 047
     Dates: start: 20091208, end: 20100207

REACTIONS (4)
  - Visual acuity reduced [None]
  - Ocular hypertension [None]
  - Intraocular pressure increased [None]
  - Cataract [None]
